FAERS Safety Report 13322389 (Version 7)
Quarter: 2019Q1

REPORT INFORMATION
  Report Type: Spontaneous
  Country: US (occurrence: US)
  Receive Date: 20170309
  Receipt Date: 20190221
  Transmission Date: 20190417
  Serious: No
  Sender: FDA-Public Use
  Company Number: US-PFIZER INC-2017100078

PATIENT
  Age: 73 Year
  Sex: Female
  Weight: 77 kg

DRUGS (18)
  1. PREDNISONE. [Suspect]
     Active Substance: PREDNISONE
     Dosage: 6 MG, DAILY
     Route: 048
  2. PREDNISONE. [Suspect]
     Active Substance: PREDNISONE
     Indication: RHEUMATOID ARTHRITIS
     Dosage: 15 MG, UNK
     Route: 048
  3. PREDNISONE. [Suspect]
     Active Substance: PREDNISONE
     Dosage: 10 MG, UNK (FOR A COUPLE WEEKS)
     Route: 048
     Dates: start: 20170216
  4. PLAQUENIL [Concomitant]
     Active Substance: HYDROXYCHLOROQUINE SULFATE
     Indication: RHEUMATOID ARTHRITIS
     Dosage: 200 MG, 2X/DAY
  5. LEXAPRO [Concomitant]
     Active Substance: ESCITALOPRAM OXALATE
     Dosage: 20 MG, 2X/DAY
  6. OMEPRAZOLE. [Concomitant]
     Active Substance: OMEPRAZOLE
     Dosage: 20 MG, 1X/DAY
  7. PLAVIX [Concomitant]
     Active Substance: CLOPIDOGREL BISULFATE
     Dosage: 75 MG, 1X/DAY
  8. XARELTO [Concomitant]
     Active Substance: RIVAROXABAN
     Indication: THROMBOSIS
     Dosage: 20 MG, 1X/DAY
     Dates: start: 2016
  9. METOPROLOL ER [Concomitant]
     Active Substance: METOPROLOL SUCCINATE
     Dosage: 25 MG, 2X/DAY
  10. LIPITOR [Concomitant]
     Active Substance: ATORVASTATIN CALCIUM
     Dosage: 20 MG, DAILY
  11. FLAXSEED [Concomitant]
     Active Substance: FLAX SEED
     Dosage: 3000 MG, DAILY
  12. XELJANZ XR [Suspect]
     Active Substance: TOFACITINIB CITRATE
     Indication: RHEUMATOID ARTHRITIS
     Dosage: 11 MG, 1X/DAY
     Route: 048
     Dates: start: 20170202, end: 2017
  13. VITAMIN D [Concomitant]
     Active Substance: CHOLECALCIFEROL
     Dosage: 4000 MG, DAILY
  14. XELJANZ XR [Suspect]
     Active Substance: TOFACITINIB CITRATE
     Dosage: 11 MG, 1X/DAY
     Dates: start: 2017
  15. PREDNISONE. [Suspect]
     Active Substance: PREDNISONE
     Dosage: 12.5 MG, UNK (FOR 2WEEKS)
     Route: 048
     Dates: start: 20170202, end: 201702
  16. CALCIUM + D3 [Concomitant]
     Active Substance: CALCIUM\CHOLECALCIFEROL
     Dosage: 2 DF, DAILY
  17. OMEGA 3 [Concomitant]
     Active Substance: OMEGA-3 FATTY ACIDS
     Dosage: 2500 MG, DAILY
  18. LYRICA [Concomitant]
     Active Substance: PREGABALIN
     Dosage: 50 MG, 1X/DAY [NIGHTLY]

REACTIONS (14)
  - Condition aggravated [Not Recovered/Not Resolved]
  - Drug effect incomplete [Unknown]
  - Peripheral swelling [Not Recovered/Not Resolved]
  - Musculoskeletal pain [Recovered/Resolved]
  - Swelling face [Recovered/Resolved]
  - Pain [Unknown]
  - Fluid retention [Unknown]
  - Weight increased [Unknown]
  - Body height decreased [Unknown]
  - Pharyngitis [Recovering/Resolving]
  - Sinusitis [Unknown]
  - Joint noise [Recovered/Resolved]
  - Nasopharyngitis [Recovering/Resolving]
  - Product dose omission [Unknown]

NARRATIVE: CASE EVENT DATE: 2017
